FAERS Safety Report 4269183-0 (Version None)
Quarter: 2004Q1

REPORT INFORMATION
  Report Type: 
  Country: None (occurrence: None)
  Receive Date: 20040113
  Receipt Date: 20040107
  Transmission Date: 20041129
  Serious: Yes (Other)
  Sender: FDA-Public Use
  Company Number: US-GLAXOSMITHKLINE-A0491932A

PATIENT
  Age: 56 Year
  Sex: Female

DRUGS (5)
  1. WELLBUTRIN [Suspect]
     Indication: DEPRESSION
     Dosage: 150MG TWICE PER DAY
     Route: 048
  2. UNKNOWN SUPPLEMENT [Suspect]
     Dates: start: 20031101, end: 20031101
  3. ESTRACE [Concomitant]
  4. CALCIUM [Concomitant]
  5. PROGESTERONE CREAM [Concomitant]

REACTIONS (4)
  - BLOOD PRESSURE INCREASED [None]
  - DIZZINESS [None]
  - PARAESTHESIA [None]
  - SYNCOPE [None]
